FAERS Safety Report 12321948 (Version 1)
Quarter: 2016Q2

REPORT INFORMATION
  Report Type: Spontaneous
  Country: US (occurrence: US)
  Receive Date: 20160502
  Receipt Date: 20160502
  Transmission Date: 20160815
  Serious: No
  Sender: FDA-Public Use
  Company Number: US-GLAXOSMITHKLINE-US2016GSK056906

PATIENT
  Age: 60 Year
  Sex: Male

DRUGS (2)
  1. TANZEUM [Suspect]
     Active Substance: ALBIGLUTIDE
     Indication: WEIGHT CONTROL
  2. TANZEUM [Suspect]
     Active Substance: ALBIGLUTIDE
     Indication: TYPE 2 DIABETES MELLITUS
     Dosage: 30 MG, WE
     Dates: start: 201604

REACTIONS (2)
  - Product use issue [Unknown]
  - Device use error [Unknown]

NARRATIVE: CASE EVENT DATE: 20160421
